FAERS Safety Report 6210397-8 (Version None)
Quarter: 2009Q2

REPORT INFORMATION
  Report Type: 
  Country: None (occurrence: None)
  Receive Date: 20090601
  Receipt Date: 20090522
  Transmission Date: 20091009
  Serious: No
  Sender: FDA-Public Use
  Company Number: US-B.I. PHARMACEUTICALS,INC./RIDGEFIELD-2009-BP-06596BP

PATIENT
  Sex: Female

DRUGS (3)
  1. SPIRIVA [Suspect]
     Indication: EMPHYSEMA
     Dosage: 18MCG
     Dates: start: 20040101
  2. CHANTIX [Concomitant]
     Indication: SMOKING CESSATION THERAPY
     Dates: start: 20090520
  3. ADVAIR HFA [Concomitant]
     Indication: EMPHYSEMA

REACTIONS (2)
  - DIABETES MELLITUS [None]
  - NECK PAIN [None]
